FAERS Safety Report 24012702 (Version 1)
Quarter: 2024Q2

REPORT INFORMATION
  Report Type: Spontaneous
  Country: GB (occurrence: GB)
  Receive Date: 20240626
  Receipt Date: 20240626
  Transmission Date: 20240716
  Serious: Yes (Other)
  Sender: FDA-Public Use
  Company Number: GB-ROCHE-10000006538

PATIENT
  Age: 18 Year
  Sex: Male

DRUGS (1)
  1. EVRYSDI [Suspect]
     Active Substance: RISDIPLAM
     Indication: Spinal muscular atrophy
     Route: 048

REACTIONS (4)
  - Rectal haemorrhage [Unknown]
  - Constipation [Unknown]
  - Red blood cell sedimentation rate [Unknown]
  - Colitis [Unknown]
